FAERS Safety Report 22957104 (Version 8)
Quarter: 2024Q3

REPORT INFORMATION
  Report Type: Report from Study
  Country: DE (occurrence: DE)
  Receive Date: 20230919
  Receipt Date: 20240717
  Transmission Date: 20241017
  Serious: Yes (Other)
  Sender: CLINUVEL
  Company Number: DE-CLINUVEL INC-2146126

PATIENT
  Age: 67 Year
  Sex: Female
  Weight: 80 kg

DRUGS (12)
  1. SCENESSE [Suspect]
     Active Substance: AFAMELANOTIDE
     Indication: Porphyria non-acute
     Route: 058
     Dates: start: 20170830, end: 20230822
  2. DICLOFENAC [Concomitant]
     Active Substance: DICLOFENAC
     Route: 048
     Dates: start: 19920201
  3. Melatonin - sprays (More Nutrition) rarely - 1mg/2 pumps [Concomitant]
     Route: 060
     Dates: start: 2013
  4. SYMBICORT [Concomitant]
     Active Substance: BUDESONIDE\FORMOTEROL FUMARATE DIHYDRATE
     Dates: start: 20230903, end: 20230909
  5. VITAMIN E [Concomitant]
     Active Substance: .ALPHA.-TOCOPHEROL
     Route: 048
     Dates: start: 2003
  6. BIOTIN [Concomitant]
     Active Substance: BIOTIN
     Route: 048
     Dates: start: 20220208
  7. BIOTIN [Concomitant]
     Active Substance: BIOTIN
     Route: 048
     Dates: start: 20210208
  8. Voltaren dispex [Concomitant]
     Route: 048
     Dates: start: 20191112
  9. CALCIUM PANTOTHENATE [Concomitant]
     Active Substance: CALCIUM PANTOTHENATE
     Route: 048
     Dates: start: 20190225
  10. MOVICOL [Concomitant]
     Active Substance: POLYETHYLENE GLYCOL 3350\POTASSIUM CHLORIDE\SODIUM BICARBONATE\SODIUM CHLORIDE
     Route: 048
     Dates: start: 20171101
  11. PANTOPRAZOLE SODIUM [Concomitant]
     Active Substance: PANTOPRAZOLE SODIUM
     Route: 048
     Dates: start: 20180411
  12. IBUPROFEN [Concomitant]
     Active Substance: IBUPROFEN
     Route: 048
     Dates: start: 20180528

REACTIONS (1)
  - Malignant melanoma [Recovered/Resolved]
